FAERS Safety Report 12000804 (Version 5)
Quarter: 2016Q2

REPORT INFORMATION
  Report Type: Spontaneous
  Country: FR (occurrence: FR)
  Receive Date: 20160204
  Receipt Date: 20160411
  Transmission Date: 20160815
  Serious: Yes (Life-Threatening, Hospitalization)
  Sender: FDA-Public Use
  Company Number: FR-B.I. PHARMACEUTICALS,INC./RIDGEFIELD-2016-BI-06967FF

PATIENT
  Age: 68 Year
  Sex: Male
  Weight: 75 kg

DRUGS (5)
  1. DIGOXINE NATIVELLE [Concomitant]
     Active Substance: DIGOXIN
     Indication: ATRIAL FIBRILLATION
     Dosage: 0.25 MG
     Route: 048
     Dates: end: 20160128
  2. OLMETEC [Concomitant]
     Active Substance: OLMESARTAN MEDOXOMIL
     Indication: HYPERTENSION
     Dosage: 40 MG
     Route: 048
     Dates: end: 20160128
  3. AMIODARONE [Concomitant]
     Active Substance: AMIODARONE
     Indication: ATRIAL FIBRILLATION
     Dosage: 200 MG
     Route: 065
     Dates: end: 20160128
  4. PRADAXA [Suspect]
     Active Substance: DABIGATRAN ETEXILATE MESYLATE
     Indication: PROPHYLAXIS
     Dosage: 220 MG
     Route: 048
     Dates: end: 20160128
  5. ALLOPURINOL. [Concomitant]
     Active Substance: ALLOPURINOL
     Indication: PRODUCT USED FOR UNKNOWN INDICATION
     Dosage: STRENGTH: 100MG
     Route: 065

REACTIONS (5)
  - Pericardial haemorrhage [Recovered/Resolved]
  - Anaemia [Not Recovered/Not Resolved]
  - Cardiac tamponade [Recovered/Resolved]
  - Overdose [Recovered/Resolved]
  - Cardiogenic shock [Recovered/Resolved]

NARRATIVE: CASE EVENT DATE: 20160128
